FAERS Safety Report 5808491-6 (Version None)
Quarter: 2008Q3

REPORT INFORMATION
  Report Type: 
  Country: None (occurrence: None)
  Receive Date: 20080714
  Receipt Date: 20080707
  Transmission Date: 20090109
  Serious: Yes (Hospitalization)
  Sender: FDA-Public Use
  Company Number: US-AMGEN-QUU292749

PATIENT
  Sex: Female

DRUGS (2)
  1. ENBREL [Suspect]
     Indication: RHEUMATOID ARTHRITIS
     Route: 058
  2. ARAVA [Concomitant]
     Route: 048

REACTIONS (8)
  - ANAL SPHINCTER ATONY [None]
  - CHRONIC SINUSITIS [None]
  - EAR INFECTION [None]
  - GAIT DISTURBANCE [None]
  - GASTROINTESTINAL INFECTION [None]
  - OEDEMA PERIPHERAL [None]
  - PAIN IN EXTREMITY [None]
  - PANCREATITIS [None]
